FAERS Safety Report 25529871 (Version 1)
Quarter: 2025Q3

REPORT INFORMATION
  Report Type: Spontaneous
  Country: GB (occurrence: None)
  Receive Date: 20250708
  Receipt Date: 20250708
  Transmission Date: 20251021
  Serious: Yes (Other)
  Sender: FDA-CTU
  Company Number: None

PATIENT
  Age: 50 Year
  Sex: Male
  Weight: 85 kg

DRUGS (1)
  1. MIRTAZAPINE [Suspect]
     Active Substance: MIRTAZAPINE
     Indication: Anxiety
     Dates: start: 20221031

REACTIONS (8)
  - Restlessness [None]
  - Agitation [None]
  - Akathisia [None]
  - Anxiety [None]
  - Fatigue [None]
  - General physical health deterioration [None]
  - Feeling of despair [None]
  - Suicide attempt [None]

NARRATIVE: CASE EVENT DATE: 20221223
